FAERS Safety Report 11024650 (Version 1)
Quarter: 2015Q2

REPORT INFORMATION
  Report Type: Spontaneous
  Country: US (occurrence: None)
  Receive Date: 20150410
  Receipt Date: 20150410
  Transmission Date: 20150821
  Serious: Yes (Other)
  Sender: FDA-Public Use
  Company Number: DEP_02620_2015

PATIENT
  Sex: Female

DRUGS (3)
  1. GABAPENTIN. [Suspect]
     Active Substance: GABAPENTIN
     Indication: OFF LABEL USE
     Dosage: 400 MG, TWO 400 MG CAPSULES IN THE MORNING, ONE 400 MG CAPSULE MID-DAY, TWO 400 MG CAPSULES AT NIGHT ORAL)
     Route: 048
  2. GABAPENTIN. [Suspect]
     Active Substance: GABAPENTIN
     Indication: OSTEOARTHRITIS
     Dosage: 400 MG, TWO 400 MG CAPSULES IN THE MORNING, ONE 400 MG CAPSULE MID-DAY, TWO 400 MG CAPSULES AT NIGHT ORAL)
     Route: 048
  3. GABAPENTIN. [Suspect]
     Active Substance: GABAPENTIN
     Indication: FIBROMYALGIA
     Dosage: 400 MG, TWO 400 MG CAPSULES IN THE MORNING, ONE 400 MG CAPSULE MID-DAY, TWO 400 MG CAPSULES AT NIGHT ORAL)
     Route: 048

REACTIONS (4)
  - Anxiety [None]
  - Cognitive disorder [None]
  - Product substitution issue [None]
  - Memory impairment [None]
